FAERS Safety Report 13103650 (Version 3)
Quarter: 2017Q4

REPORT INFORMATION
  Report Type: Spontaneous
  Country: ES (occurrence: ES)
  Receive Date: 20170111
  Receipt Date: 20171229
  Transmission Date: 20180320
  Serious: Yes (Life-Threatening, Hospitalization, Other)
  Sender: FDA-Public Use
  Company Number: ES-SUN PHARMACEUTICAL INDUSTRIES LTD-2016R1-131137

PATIENT
  Age: 7 Year
  Sex: Male

DRUGS (3)
  1. SALBUTAMOL [Interacting]
     Active Substance: ALBUTEROL
     Dosage: UNK, TID
     Route: 065
  2. SALBUTAMOL [Suspect]
     Active Substance: ALBUTEROL
     Indication: ASTHMA
     Dosage: OCCASIONALLY
     Route: 065
  3. TIMOLOL. [Interacting]
     Active Substance: TIMOLOL
     Indication: GLAUCOMA
     Dosage: UNK
     Route: 065
     Dates: start: 20130214

REACTIONS (4)
  - Loss of consciousness [Recovered/Resolved]
  - Asthma [Recovered/Resolved]
  - Coma scale abnormal [Recovered/Resolved]
  - Drug interaction [Recovered/Resolved]

NARRATIVE: CASE EVENT DATE: 20130214
